FAERS Safety Report 13701479 (Version 1)
Quarter: 2017Q2

REPORT INFORMATION
  Report Type: Spontaneous
  Country: US (occurrence: US)
  Receive Date: 20170628
  Receipt Date: 20170628
  Transmission Date: 20170830
  Serious: Yes (Disabling)
  Sender: FDA-Public Use
  Company Number: None

PATIENT
  Age: 37 Year
  Sex: Female
  Weight: 67.5 kg

DRUGS (9)
  1. VIT B 12 [Concomitant]
  2. LAMICTAL [Concomitant]
     Active Substance: LAMOTRIGINE
  3. CALCIUM/VITAMIN D [Concomitant]
     Active Substance: CALCIUM\VITAMIN D
  4. FOLIC ACID. [Concomitant]
     Active Substance: FOLIC ACID
  5. MULTI VITAMIN [Concomitant]
     Active Substance: VITAMINS
  6. PROBIOTIC [Concomitant]
     Active Substance: PROBIOTICS NOS
  7. MIRENA [Suspect]
     Active Substance: LEVONORGESTREL
     Indication: CONTRACEPTION
     Dosage: ?          QUANTITY:1 DEVICE;OTHER FREQUENCY:1 TIME INSERTION;?
     Route: 067
     Dates: start: 20170418, end: 20170627
  8. VIT B 6 [Concomitant]
  9. WELLBUTRIN [Concomitant]
     Active Substance: BUPROPION HYDROCHLORIDE

REACTIONS (11)
  - Headache [None]
  - Alopecia [None]
  - Arthralgia [None]
  - Quality of life decreased [None]
  - Rash [None]
  - Fatigue [None]
  - Joint swelling [None]
  - Pelvic pain [None]
  - Swelling [None]
  - Back pain [None]
  - Loss of personal independence in daily activities [None]

NARRATIVE: CASE EVENT DATE: 20170615
